FAERS Safety Report 7654211-2 (Version None)
Quarter: 2011Q3

REPORT INFORMATION
  Report Type: 
  Country: None (occurrence: None)
  Receive Date: 20110803
  Receipt Date: 20110725
  Transmission Date: 20111222
  Serious: Yes (Other)
  Sender: FDA-Public Use
  Company Number: US-BAYER-201042102NA

PATIENT
  Age: 52 Year
  Sex: Male
  Weight: 113 kg

DRUGS (14)
  1. TRASYLOL [Suspect]
     Indication: PRODUCT USED FOR UNKNOWN INDICATION
     Dosage: 1 ML, TEST DOSE
     Route: 042
     Dates: start: 20020603, end: 20020603
  2. TRASYLOL [Suspect]
     Dosage: 50ML/HOUR, INFUSION
     Route: 042
     Dates: start: 20020603, end: 20020603
  3. PROTAMINE [Concomitant]
     Dosage: 400 MG, UNK
  4. NITROGLYCERIN [Concomitant]
     Dosage: TITRATE
  5. PROTAMINE [Concomitant]
     Dosage: 50 MG, UNK
     Route: 042
     Dates: start: 20020603, end: 20020603
  6. FENTANYL [Concomitant]
     Dosage: 500 ?G, UNK
     Route: 042
     Dates: start: 20020603, end: 20020603
  7. SOLU-CORTEF [Concomitant]
     Dosage: 100 MG, UNK
  8. HEPARIN [Concomitant]
     Dosage: 40000 U, UNK
  9. ZINACEF [Concomitant]
     Dosage: 1.5 G, UNK
  10. VERSED [Concomitant]
  11. TRASYLOL [Suspect]
     Dosage: 25ML/HR UNTIL BOTTLE INFUSED
     Dates: start: 20020603, end: 20020603
  12. DESMOPRESSIN [Concomitant]
     Dosage: 30 ?G, UNK
     Route: 042
     Dates: start: 20020603, end: 20020603
  13. ETOMIDATE [Concomitant]
     Dosage: 8 MG, UNK
  14. SUCCINYLCHOLINE CHLORIDE [Concomitant]
     Dosage: 200 MG, UNK

REACTIONS (12)
  - FEAR [None]
  - PAIN [None]
  - MULTI-ORGAN FAILURE [None]
  - EMOTIONAL DISTRESS [None]
  - ANXIETY [None]
  - UNEVALUABLE EVENT [None]
  - RENAL IMPAIRMENT [None]
  - ANHEDONIA [None]
  - STRESS [None]
  - INJURY [None]
  - RENAL FAILURE [None]
  - RENAL INJURY [None]
